FAERS Safety Report 9868061 (Version 2)
Quarter: 2014Q1

REPORT INFORMATION
  Report Type: Report from Study
  Country: TR (occurrence: TR)
  Receive Date: 20140204
  Receipt Date: 20140204
  Transmission Date: 20141002
  Serious: Yes (Other)
  Sender: FDA-Public Use
  Company Number: TR-SANOFI-AVENTIS-2012SA033888

PATIENT
  Age: 25 Year
  Sex: Male
  Weight: 57 kg

DRUGS (2)
  1. TERIFLUNOMIDE [Suspect]
     Indication: MULTIPLE SCLEROSIS
     Route: 048
     Dates: start: 20120215, end: 20120516
  2. COLESTYRAMINE [Concomitant]
     Indication: DRUG DETOXIFICATION
     Route: 065
     Dates: start: 20120524, end: 20120603

REACTIONS (2)
  - Alanine aminotransferase increased [Recovered/Resolved]
  - Blood creatine phosphokinase increased [Recovered/Resolved]
